FAERS Safety Report 23124181 (Version 1)
Quarter: 2023Q4

REPORT INFORMATION
  Report Type: Spontaneous
  Country: US (occurrence: None)
  Receive Date: 20231027
  Receipt Date: 20231027
  Transmission Date: 20240110
  Serious: No
  Sender: FDA-Public Use
  Company Number: None

PATIENT
  Age: 24 Year
  Sex: Female

DRUGS (1)
  1. HALOPERIDOL [Suspect]
     Active Substance: HALOPERIDOL
     Indication: Bipolar disorder
     Dosage: OTHER FREQUENCY : ONCE;?
     Route: 048
     Dates: end: 20230808

REACTIONS (1)
  - Oculogyric crisis [None]

NARRATIVE: CASE EVENT DATE: 20230807
